FAERS Safety Report 21493886 (Version 17)
Quarter: 2023Q2

REPORT INFORMATION
  Report Type: Report from Study
  Country: US (occurrence: None)
  Receive Date: 20221021
  Receipt Date: 20230612
  Transmission Date: 20230722
  Serious: Yes (Other)
  Sender: FDA-Public Use
  Company Number: US-ROCHE-3191409

PATIENT
  Age: 87 Year
  Sex: Female
  Weight: 65.7 kg

DRUGS (25)
  1. RANIBIZUMAB [Suspect]
     Active Substance: RANIBIZUMAB
     Indication: Neovascular age-related macular degeneration
     Dosage: DOSE OF STUDY DRUG FIRST ADMINISTERED 100 MG/ML. START DATE OF MOST RECENT DOSE ( 100 MG/ML) PRIOR T
     Route: 050
     Dates: start: 20190128
  2. RANIBIZUMAB [Suspect]
     Active Substance: RANIBIZUMAB
  3. RANIBIZUMAB [Suspect]
     Active Substance: RANIBIZUMAB
  4. RANIBIZUMAB [Suspect]
     Active Substance: RANIBIZUMAB
  5. RANIBIZUMAB [Suspect]
     Active Substance: RANIBIZUMAB
  6. RANIBIZUMAB [Concomitant]
     Active Substance: RANIBIZUMAB
     Dosage: DOSE LAST STUDY DRUG ADMIN PRIOR AE AND SAE WAS10 MG/ML. DRUG FREQUENCY : OTHER
     Route: 050
  7. ATORVASTATIN [Concomitant]
     Active Substance: ATORVASTATIN
     Indication: Hypercholesterolaemia
     Route: 048
     Dates: start: 2011
  8. OXYBUTYNIN [Concomitant]
     Active Substance: OXYBUTYNIN
     Indication: Polyuria
     Route: 048
     Dates: start: 2014
  9. TRAZODONE [Concomitant]
     Active Substance: TRAZODONE HYDROCHLORIDE
     Indication: Anxiety
     Route: 048
     Dates: start: 1995, end: 20221020
  10. LEVOTHYROXINE [Concomitant]
     Active Substance: LEVOTHYROXINE
     Indication: Hypothyroidism
     Route: 048
     Dates: start: 2010
  11. TYLENOL [Concomitant]
     Active Substance: ACETAMINOPHEN
     Indication: Back pain
     Route: 048
     Dates: start: 20170915
  12. LOSARTAN [Concomitant]
     Active Substance: LOSARTAN
     Indication: Hypertension
     Route: 048
     Dates: start: 20180620
  13. TRAMADOL [Concomitant]
     Active Substance: TRAMADOL
     Indication: Spinal stenosis
     Dates: start: 20221020
  14. TRAMADOL [Concomitant]
     Active Substance: TRAMADOL
     Indication: Back pain
  15. LUCENTIS [Concomitant]
     Active Substance: RANIBIZUMAB
     Dosage: NO
     Dates: start: 20230118, end: 20230118
  16. LUCENTIS [Concomitant]
     Active Substance: RANIBIZUMAB
     Dates: start: 20230330, end: 20230330
  17. LUCENTIS [Concomitant]
     Active Substance: RANIBIZUMAB
     Dates: start: 20230504, end: 20230504
  18. LUCENTIS [Concomitant]
     Active Substance: RANIBIZUMAB
     Dates: start: 20230605, end: 20230605
  19. ERYTHROMYCIN [Concomitant]
     Active Substance: ERYTHROMYCIN
     Indication: Conjunctivitis
     Route: 047
     Dates: start: 20230320
  20. OFLOXACIN [Concomitant]
     Active Substance: OFLOXACIN
     Route: 047
     Dates: start: 20220414, end: 20220428
  21. PRED FORTE [Concomitant]
     Active Substance: PREDNISOLONE ACETATE
     Route: 047
     Dates: start: 20220414, end: 20220512
  22. RESTASIS [Concomitant]
     Active Substance: CYCLOSPORINE
     Indication: Dry eye
     Dates: start: 20230327
  23. ANCEF (UNITED STATES) [Concomitant]
     Route: 047
     Dates: start: 20220414, end: 20220414
  24. SOLU-MEDROL [Concomitant]
     Active Substance: METHYLPREDNISOLONE SODIUM SUCCINATE
     Route: 047
     Dates: start: 20220414, end: 20220414
  25. MAXITROL [Concomitant]
     Active Substance: DEXAMETHASONE\NEOMYCIN SULFATE\POLYMYXIN B SULFATE
     Route: 047
     Dates: start: 20220414, end: 20220414

REACTIONS (2)
  - Scleral thinning [Recovered/Resolved]
  - Device issue [Unknown]

NARRATIVE: CASE EVENT DATE: 20220217
